FAERS Safety Report 8831179 (Version 1)
Quarter: 2012Q4

REPORT INFORMATION
  Report Type: 
  Country: JP (occurrence: JP)
  Receive Date: 20121008
  Receipt Date: 20121008
  Transmission Date: 20130627
  Serious: Yes (Hospitalization)
  Sender: FDA-Public Use
  Company Number: JP-ASTELLAS-2012JP006708

PATIENT
  Sex: Male

DRUGS (1)
  1. BETANIS [Suspect]
     Dosage: 50 mg, UID/QD
     Route: 048

REACTIONS (1)
  - Toxic skin eruption [Recovered/Resolved]
